FAERS Safety Report 4294758-2 (Version None)
Quarter: 2004Q1

REPORT INFORMATION
  Report Type: 
  Country: None (occurrence: None)
  Receive Date: 20040213
  Receipt Date: 20030821
  Transmission Date: 20041129
  Serious: Yes (Hospitalization)
  Sender: FDA-Public Use
  Company Number: WAES 0308GBR00155

PATIENT
  Age: 41 Year
  Sex: Female

DRUGS (11)
  1. FOSAMAX [Suspect]
     Route: 048
     Dates: start: 20011101
  2. ALFACALCIDOL [Concomitant]
  3. ALLOPURINOL [Concomitant]
  4. ASPIRIN [Concomitant]
  5. CELECOXIB [Concomitant]
  6. DIGOXIN [Concomitant]
  7. FUROSEMIDE [Concomitant]
  8. LEVOTHYROXINE SODIUM [Concomitant]
  9. LEVOTHYROXINE SODIUM [Concomitant]
  10. QUININE SULFATE [Concomitant]
  11. TRAMADOL HYDROCHLORIDE [Concomitant]

REACTIONS (1)
  - MULTIPLE MYELOMA [None]
